FAERS Safety Report 23898712 (Version 1)
Quarter: 2024Q2

REPORT INFORMATION
  Report Type: Spontaneous
  Country: US (occurrence: US)
  Receive Date: 20240525
  Receipt Date: 20240525
  Transmission Date: 20240716
  Serious: No
  Sender: FDA-Public Use
  Company Number: US-TEVA-VS-3197677

PATIENT

DRUGS (2)
  1. AJOVY [Suspect]
     Active Substance: FREMANEZUMAB-VFRM
     Indication: Migraine
     Dosage: STRENGTH:225MG/1.5ML
     Route: 065
     Dates: start: 20240508
  2. AJOVY [Suspect]
     Active Substance: FREMANEZUMAB-VFRM

REACTIONS (1)
  - Headache [Unknown]
